FAERS Safety Report 4373988-5 (Version None)
Quarter: 2004Q1

REPORT INFORMATION
  Report Type: 
  Country: None (occurrence: None)
  Receive Date: 20040305
  Receipt Date: 20031215
  Transmission Date: 20041129
  Serious: Yes (Other)
  Sender: FDA-Public Use
  Company Number: 2003UW16647

PATIENT
  Age: 73 Year
  Sex: Male
  Weight: 81.6475 kg

DRUGS (5)
  1. CRESTOR [Suspect]
     Dosage: 10 MG PO
     Route: 048
  2. ALBUTEROL [Concomitant]
  3. ATROVENT [Concomitant]
  4. FOSINOPRIL SODIUM [Concomitant]
  5. HYDROCHLOROTHIAZINE [Concomitant]

REACTIONS (2)
  - NERVOUSNESS [None]
  - TREMOR [None]
